FAERS Safety Report 9820789 (Version 1)
Quarter: 2013Q4

REPORT INFORMATION
  Report Type: Spontaneous
  Country: US (occurrence: None)
  Receive Date: 20131028
  Receipt Date: 20131028
  Transmission Date: 20140711
  Serious: Yes (Other)
  Sender: FDA-Public Use
  Company Number: 2013US001441

PATIENT
  Age: 60 Year
  Sex: Female
  Weight: 58 kg

DRUGS (8)
  1. ICLUSIG [Suspect]
     Indication: CHRONIC MYELOID LEUKAEMIA
     Route: 048
     Dates: start: 20130314, end: 2013
  2. NEXIUM I.V. [Concomitant]
     Indication: CHRONIC MYELOID LEUKAEMIA
  3. TRAZODONE (TRAZODONE) [Concomitant]
  4. LEXAPRO (ESCITALOPRAM OXALATE) [Concomitant]
  5. MULTIVITAMIN (VITAMINS NOS) [Concomitant]
  6. CALCIUM + VITAMIN D (CALCIUM, COLECALCIFEROL) [Concomitant]
  7. VITAMIN D [Concomitant]
  8. VITAMIN B COMPLEX (ASCORBIC ACID, BIOTIN, CALCIUMPANTOTHENATE, CYANOCOBALAMIN, NICOTINAMIDE, PYRIDOXINE HYDROCHLORIDE, RIBOFLAVIN SODIUM PHOSPHATE, THIAMINE HYDROCHLORIDE) [Concomitant]

REACTIONS (4)
  - Vision blurred [None]
  - Rash pruritic [None]
  - Abdominal pain upper [None]
  - Nausea [None]
